FAERS Safety Report 9962403 (Version 1)
Quarter: 2014Q1

REPORT INFORMATION
  Report Type: Report from Study
  Country: US (occurrence: US)
  Receive Date: 20140305
  Receipt Date: 20140305
  Transmission Date: 20141002
  Serious: No
  Sender: FDA-Public Use
  Company Number: US-ABBVIE-13P-163-1116264-00

PATIENT
  Age: 42 Year
  Sex: Female
  Weight: 60.84 kg

DRUGS (6)
  1. HUMIRA [Suspect]
     Indication: RHEUMATOID ARTHRITIS
     Dates: start: 20130522, end: 20130605
  2. HUMIRA [Suspect]
     Indication: RHEUMATOID ARTHRITIS
     Dates: start: 20130619
  3. METHOTREXATE [Concomitant]
     Indication: RHEUMATOID ARTHRITIS
  4. SAVELLA [Concomitant]
     Indication: FIBROMYALGIA
  5. ALLEGRA [Concomitant]
     Indication: SEASONAL ALLERGY
     Dosage: ON OCCASION, AS NEEDED
  6. AMITRIPTYLINE [Concomitant]
     Indication: SLEEP DISORDER

REACTIONS (4)
  - Injection site pain [Recovered/Resolved]
  - Injection site erythema [Not Recovered/Not Resolved]
  - Injection site swelling [Not Recovered/Not Resolved]
  - Injection site pruritus [Not Recovered/Not Resolved]
